FAERS Safety Report 6066196-3 (Version None)
Quarter: 2009Q1

REPORT INFORMATION
  Report Type: 
  Country: None (occurrence: None)
  Receive Date: 20090205
  Receipt Date: 20090128
  Transmission Date: 20090719
  Serious: Yes (Other)
  Sender: FDA-Public Use
  Company Number: PHHY2009FR03406

PATIENT
  Age: 50 Year
  Sex: Male

DRUGS (2)
  1. EXJADE [Suspect]
     Indication: IRON OVERLOAD
     Dosage: UNK
     Dates: start: 20090101, end: 20090101
  2. DRUG THERAPY NOS [Concomitant]

REACTIONS (4)
  - BLOOD CREATININE INCREASED [None]
  - NEPHROPATHY [None]
  - RENAL FAILURE [None]
  - RENAL TUBULAR NECROSIS [None]
